FAERS Safety Report 5310303-4 (Version None)
Quarter: 2007Q2

REPORT INFORMATION
  Report Type: 
  Country: None (occurrence: None)
  Receive Date: 20070427
  Receipt Date: 20070312
  Transmission Date: 20071010
  Serious: Yes (Hospitalization)
  Sender: FDA-Public Use
  Company Number: US-SANOFI-SYNTHELABO-A03200702358

PATIENT
  Sex: Male

DRUGS (2)
  1. ZOLOFT [Concomitant]
     Dosage: UNK
     Route: 065
  2. AMBIEN [Suspect]
     Indication: INSOMNIA
     Route: 048
     Dates: start: 20020101

REACTIONS (8)
  - AMNESIA [None]
  - DRUG DEPENDENCE [None]
  - INTENTIONAL OVERDOSE [None]
  - LIBIDO DECREASED [None]
  - ROAD TRAFFIC ACCIDENT [None]
  - SHOPLIFTING [None]
  - SLEEP APNOEA SYNDROME [None]
  - UNRESPONSIVE TO STIMULI [None]
